FAERS Safety Report 23152795 (Version 2)
Quarter: 2023Q4

REPORT INFORMATION
  Report Type: Spontaneous
  Country: CA (occurrence: None)
  Receive Date: 20231107
  Receipt Date: 20231110
  Transmission Date: 20240109
  Serious: Yes (Other)
  Sender: FDA-Public Use
  Company Number: CA-PFIZER INC-202300355646

PATIENT
  Age: 18 Year
  Sex: Male

DRUGS (3)
  1. METHOTREXATE [Suspect]
     Active Substance: METHOTREXATE
     Indication: Crohn^s disease
     Dates: start: 2017, end: 2021
  2. METHOTREXATE [Suspect]
     Active Substance: METHOTREXATE
     Dates: start: 20170113, end: 2019
  3. SULFASALAZINE [Concomitant]
     Active Substance: SULFASALAZINE
     Dosage: 1000 MG 2X/DAY (STARTED TWO YEARS AGO)

REACTIONS (8)
  - Ileal stenosis [Unknown]
  - Drug ineffective for unapproved indication [Unknown]
  - Product use in unapproved indication [Unknown]
  - Malaise [Unknown]
  - Abdominal pain [Unknown]
  - Weight decreased [Unknown]
  - Anaemia [Recovered/Resolved]
  - Arthritis enteropathic [Not Recovered/Not Resolved]

NARRATIVE: CASE EVENT DATE: 20170101
